FAERS Safety Report 9434667 (Version 1)
Quarter: 2013Q3

REPORT INFORMATION
  Report Type: Spontaneous
  Country: US (occurrence: US)
  Receive Date: 20130801
  Receipt Date: 20130801
  Transmission Date: 20140515
  Serious: No
  Sender: FDA-Public Use
  Company Number: US-BAYER-2013-092897

PATIENT
  Age: 49 Year
  Sex: Female
  Weight: 99 kg

DRUGS (2)
  1. ESTRADIOL HEMIHYDRATE (PATCH) [Suspect]
     Dosage: 0.05 MG/24HR, OW
     Route: 062
     Dates: start: 201211
  2. SIMVASTATIN [Concomitant]
     Indication: BLOOD CHOLESTEROL INCREASED
     Dosage: 20 MG, QD
     Route: 048
     Dates: start: 2012

REACTIONS (4)
  - Headache [Recovered/Resolved]
  - Product adhesion issue [None]
  - Hot flush [Recovered/Resolved]
  - Inappropriate schedule of drug administration [None]
